FAERS Safety Report 9424705 (Version 3)
Quarter: 2014Q1

REPORT INFORMATION
  Report Type: Spontaneous
  Country: US (occurrence: US)
  Receive Date: 20130725
  Receipt Date: 20140212
  Transmission Date: 20141002
  Serious: Yes (Other)
  Sender: FDA-Public Use
  Company Number: JPI-P-033760

PATIENT
  Age: 66 Year
  Sex: Female
  Weight: 50.8 kg

DRUGS (2)
  1. XYREM [Suspect]
     Indication: INSOMNIA
     Route: 048
     Dates: start: 200907, end: 200907
  2. MULTIPLE UNSPECIFIED MEDICATIONS [Concomitant]

REACTIONS (6)
  - Arthralgia [None]
  - Arthralgia [None]
  - Pain in extremity [None]
  - Osteoarthritis [None]
  - Insomnia [None]
  - Drug dose omission [None]
